FAERS Safety Report 10882011 (Version 14)
Quarter: 2021Q1

REPORT INFORMATION
  Report Type: Spontaneous
  Country: US (occurrence: US)
  Receive Date: 20150303
  Receipt Date: 20210208
  Transmission Date: 20210419
  Serious: Yes (Other)
  Sender: FDA-Public Use
  Company Number: US-PFIZER INC-2015072909

PATIENT
  Age: 73 Year
  Sex: Male
  Weight: 65.31 kg

DRUGS (6)
  1. PROCARDIA XL [Suspect]
     Active Substance: NIFEDIPINE
     Indication: HYPERTENSION
     Dosage: 90 MG, 1X/DAY
     Route: 048
     Dates: start: 2000
  2. PROCARDIA XL [Suspect]
     Active Substance: NIFEDIPINE
     Dosage: 30 MG
  3. PROCARDIA XL [Suspect]
     Active Substance: NIFEDIPINE
     Dosage: UNK
  4. PROCARDIA XL [Suspect]
     Active Substance: NIFEDIPINE
     Dosage: 120 MG, 2X/DAY
     Route: 048
  5. PROCARDIA XL [Suspect]
     Active Substance: NIFEDIPINE
     Dosage: 60 MG, 2X/DAY
     Route: 048
  6. PROCARDIA XL [Suspect]
     Active Substance: NIFEDIPINE
     Dosage: UNK

REACTIONS (6)
  - Off label use [Unknown]
  - Prescribed overdose [Unknown]
  - Product prescribing error [Unknown]
  - Drug ineffective [Unknown]
  - Hypoacusis [Unknown]
  - Mental impairment [Unknown]

NARRATIVE: CASE EVENT DATE: 2000
